FAERS Safety Report 22115202 (Version 1)
Quarter: 2023Q1

REPORT INFORMATION
  Report Type: Spontaneous
  Country: CZ (occurrence: CZ)
  Receive Date: 20230320
  Receipt Date: 20230320
  Transmission Date: 20230417
  Serious: Yes (Death, Hospitalization)
  Sender: FDA-Public Use
  Company Number: CZ-Orion Corporation ORION PHARMA-MARE2023-0080

PATIENT
  Age: 50 Year
  Sex: Female

DRUGS (5)
  1. MYCOPHENOLATE MOFETIL [Suspect]
     Active Substance: MYCOPHENOLATE MOFETIL
     Indication: Prophylaxis
     Dosage: UNK,IMMUNOSUPPRESSIVE THERAPY WAS STOPPED
     Route: 065
  2. WARFARIN [Suspect]
     Active Substance: WARFARIN
     Indication: Product used for unknown indication
     Dosage: UNK
     Route: 065
  3. CALCITRIOL [Suspect]
     Active Substance: CALCITRIOL
     Indication: Hyperparathyroidism secondary
     Dosage: UNK
     Route: 065
  4. TACROLIMUS [Suspect]
     Active Substance: TACROLIMUS
     Indication: Prophylaxis
     Dosage: UNK,IMMUNOSUPPRESSIVE THERAPY WAS STOPPED
     Route: 065
  5. PREDNISONE [Suspect]
     Active Substance: PREDNISONE
     Indication: Prophylaxis
     Dosage: UNK,IMMUNOSUPPRESSIVE THERAPY WAS STOPPED
     Route: 065

REACTIONS (1)
  - Calciphylaxis [Fatal]
